FAERS Safety Report 15649352 (Version 1)
Quarter: 2018Q4

REPORT INFORMATION
  Report Type: Spontaneous
  Country: US (occurrence: US)
  Receive Date: 20181122
  Receipt Date: 20181122
  Transmission Date: 20190205
  Serious: No
  Sender: FDA-Public Use
  Company Number: US-JNJFOC-20181101281

PATIENT
  Sex: Female
  Weight: 72.58 kg

DRUGS (3)
  1. TREMFYA [Suspect]
     Active Substance: GUSELKUMAB
     Indication: PSORIASIS
     Route: 058
     Dates: start: 20180416
  2. VICTOZA [Concomitant]
     Active Substance: LIRAGLUTIDE
     Indication: DIABETES MELLITUS
     Dates: end: 201808
  3. TREMFYA [Suspect]
     Active Substance: GUSELKUMAB
     Indication: PUSTULAR PSORIASIS
     Route: 058
     Dates: start: 20180416

REACTIONS (7)
  - Skin atrophy [Unknown]
  - Underdose [Unknown]
  - Decreased appetite [Unknown]
  - Abnormal loss of weight [Unknown]
  - Injection site nodule [Unknown]
  - Blood glucose increased [Unknown]
  - Injection site pain [Unknown]
